FAERS Safety Report 10453391 (Version 1)
Quarter: 2014Q3

REPORT INFORMATION
  Report Type: Spontaneous
  Country: DE (occurrence: DE)
  Receive Date: 20140915
  Receipt Date: 20140915
  Transmission Date: 20150326
  Serious: Yes (Other)
  Sender: FDA-Public Use
  Company Number: DE-ACTAVIS-2014-19703

PATIENT
  Sex: Male

DRUGS (1)
  1. PANTOPRAZOLE [Suspect]
     Active Substance: PANTOPRAZOLE SODIUM
     Indication: PRODUCT USED FOR UNKNOWN INDICATION
     Dosage: 40 MG TABLET
     Route: 065
     Dates: start: 20130901, end: 20140901

REACTIONS (8)
  - Visual impairment [Unknown]
  - Painful defaecation [Unknown]
  - Myalgia [Unknown]
  - Nephritis [Unknown]
  - Dyspnoea [Unknown]
  - Muscle spasms [Unknown]
  - Arthralgia [Unknown]
  - Dysuria [Unknown]
